FAERS Safety Report 23286457 (Version 1)
Quarter: 2023Q4

REPORT INFORMATION
  Report Type: Spontaneous
  Country: US (occurrence: US)
  Receive Date: 20231212
  Receipt Date: 20231212
  Transmission Date: 20240109
  Serious: Yes (Other)
  Sender: FDA-Public Use
  Company Number: US-MYLANLABS-2023M1130682

PATIENT
  Age: 59 Year
  Sex: Male

DRUGS (15)
  1. CYCLOSPORINE [Suspect]
     Active Substance: CYCLOSPORINE
     Indication: Eczema
     Dosage: UNK
     Route: 065
  2. CYCLOSPORINE [Suspect]
     Active Substance: CYCLOSPORINE
     Indication: Psoriasis
  3. PREDNISONE [Suspect]
     Active Substance: PREDNISONE
     Indication: Eczema
     Dosage: UNK
     Route: 065
  4. PREDNISONE [Suspect]
     Active Substance: PREDNISONE
     Indication: Psoriasis
     Dosage: UNK (DOSE DECREASED)
     Route: 065
  5. CLOBETASOL [Suspect]
     Active Substance: CLOBETASOL
     Indication: Eczema
     Dosage: UNK
     Route: 065
  6. CLOBETASOL [Suspect]
     Active Substance: CLOBETASOL
     Indication: Psoriasis
  7. ACITRETIN [Suspect]
     Active Substance: ACITRETIN
     Indication: Eczema
     Dosage: UNK
     Route: 065
  8. ACITRETIN [Suspect]
     Active Substance: ACITRETIN
     Indication: Psoriasis
  9. DUPILUMAB [Suspect]
     Active Substance: DUPILUMAB
     Indication: Eczema
     Dosage: UNK
     Route: 065
  10. DUPILUMAB [Suspect]
     Active Substance: DUPILUMAB
     Indication: Psoriasis
  11. ADALIMUMAB [Suspect]
     Active Substance: ADALIMUMAB\ISOPROPYL ALCOHOL
     Indication: Eczema
     Dosage: UNK
  12. ADALIMUMAB [Suspect]
     Active Substance: ADALIMUMAB\ISOPROPYL ALCOHOL
     Indication: Psoriasis
  13. GUSELKUMAB [Suspect]
     Active Substance: GUSELKUMAB
     Indication: Eczema
     Dosage: UNK
     Route: 065
  14. GUSELKUMAB [Suspect]
     Active Substance: GUSELKUMAB
     Indication: Psoriasis
  15. HYDROXYZINE [Concomitant]
     Active Substance: HYDROXYZINE HYDROCHLORIDE
     Indication: Pruritus
     Dosage: UNK UNK, HS (RECEIVED NIGHTLY)
     Route: 065

REACTIONS (3)
  - Renal impairment [Unknown]
  - Pathological fracture [Unknown]
  - Drug ineffective [Unknown]
